FAERS Safety Report 4408211-6 (Version None)
Quarter: 2004Q3

REPORT INFORMATION
  Report Type: 
  Country: None (occurrence: None)
  Receive Date: 20040722
  Receipt Date: 20040712
  Transmission Date: 20050211
  Serious: Yes (Other)
  Sender: FDA-Public Use
  Company Number: 2004047417

PATIENT
  Age: 62 Year
  Sex: Female

DRUGS (1)
  1. ATORVASTATIN (ATORVASTATIN) [Suspect]
     Indication: HYPERCHOLESTEROLAEMIA
     Dosage: (10 MG), ORAL
     Route: 048
     Dates: start: 20040201

REACTIONS (1)
  - CORNEAL DYSTROPHY [None]
